FAERS Safety Report 23336085 (Version 1)
Quarter: 2023Q4

REPORT INFORMATION
  Report Type: Spontaneous
  Country: CN (occurrence: None)
  Receive Date: 20231225
  Receipt Date: 20231225
  Transmission Date: 20240110
  Serious: Yes (Other)
  Sender: FDA-Public Use
  Company Number: CN-ROCHE-3478265

PATIENT

DRUGS (3)
  1. POLIVY [Suspect]
     Active Substance: POLATUZUMAB VEDOTIN-PIIQ
     Indication: Diffuse large B-cell lymphoma
     Route: 065
  2. MABTHERA [Suspect]
     Active Substance: RITUXIMAB
     Indication: Diffuse large B-cell lymphoma
     Route: 065
  3. ZANUBRUTINIB [Concomitant]
     Active Substance: ZANUBRUTINIB

REACTIONS (10)
  - Pneumonia [Recovering/Resolving]
  - Small intestinal obstruction [Recovering/Resolving]
  - Alanine aminotransferase increased [Recovering/Resolving]
  - Aspartate aminotransferase increased [Recovering/Resolving]
  - Urinary tract infection [Recovering/Resolving]
  - Upper respiratory tract infection [Recovering/Resolving]
  - Neutrophil count decreased [Recovering/Resolving]
  - Dizziness [Recovering/Resolving]
  - Epistaxis [Recovering/Resolving]
  - Petechiae [Recovering/Resolving]
